FAERS Safety Report 14328171 (Version 1)
Quarter: 2017Q4

REPORT INFORMATION
  Report Type: Spontaneous
  Country: US (occurrence: US)
  Receive Date: 20171226
  Receipt Date: 20171226
  Transmission Date: 20180321
  Serious: Yes (Life-Threatening, Other)
  Sender: FDA-Public Use
  Company Number: None

PATIENT
  Age: 80 Year
  Sex: Female
  Weight: 49.5 kg

DRUGS (1)
  1. EPOGEN [Suspect]
     Active Substance: ERYTHROPOIETIN
     Indication: BLOOD IRON
     Dosage: SHOT/STOMACH?
     Dates: start: 20171214

REACTIONS (4)
  - Oxygen saturation decreased [None]
  - Syncope [None]
  - Feeling hot [None]
  - Chest pain [None]

NARRATIVE: CASE EVENT DATE: 20171214
